FAERS Safety Report 23527413 (Version 1)
Quarter: 2024Q1

REPORT INFORMATION
  Report Type: Spontaneous
  Country: FR (occurrence: FR)
  Receive Date: 20240215
  Receipt Date: 20240215
  Transmission Date: 20240409
  Serious: Yes (Other)
  Sender: FDA-Public Use
  Company Number: FR-GLAXOSMITHKLINE-FR2024GSK015076

PATIENT
  Sex: Male

DRUGS (1)
  1. VALACYCLOVIR HYDROCHLORIDE [Suspect]
     Active Substance: VALACYCLOVIR HYDROCHLORIDE
     Indication: Infection-induced seroconversion
     Dosage: 8 MILLIGRAM, QD
     Route: 064

REACTIONS (4)
  - Deafness bilateral [Unknown]
  - Cytomegalovirus infection [Unknown]
  - Atrophy [Unknown]
  - Foetal exposure during pregnancy [Unknown]
